FAERS Safety Report 7582266-2 (Version None)
Quarter: 2011Q2

REPORT INFORMATION
  Report Type: 
  Country: None (occurrence: None)
  Receive Date: 20110622
  Receipt Date: 20110607
  Transmission Date: 20111010
  Serious: Yes (Hospitalization, Other)
  Sender: FDA-Public Use
  Company Number: 2009AL000102

PATIENT
  Age: 47 Year
  Sex: Female

DRUGS (7)
  1. CLONAZEPAM [Concomitant]
  2. LAMOTRIGINE [Concomitant]
  3. QUETIAPINE [Concomitant]
  4. FLUTICASONE PROPIONATE [Concomitant]
  5. DEPAKOTE [Concomitant]
  6. SERTRALINE HYDROCHLORIDE [Suspect]
     Indication: DEPRESSION
     Dosage: 200 MG; QD; PO
     Route: 048
  7. CLOZAPINE [Concomitant]

REACTIONS (6)
  - CARDIOMYOPATHY [None]
  - TACHYPNOEA [None]
  - TACHYCARDIA [None]
  - OXYGEN SATURATION DECREASED [None]
  - MONOCYTE COUNT INCREASED [None]
  - BODY TEMPERATURE INCREASED [None]
